FAERS Safety Report 11795913 (Version 1)
Quarter: 2015Q4

REPORT INFORMATION
  Report Type: Spontaneous
  Country: PL (occurrence: PL)
  Receive Date: 20151203
  Receipt Date: 20151203
  Transmission Date: 20160305
  Serious: Yes (Other)
  Sender: FDA-Public Use
  Company Number: PL-ROCHE-1671134

PATIENT
  Age: 37 Year
  Sex: Female

DRUGS (3)
  1. CAPECITABINE. [Suspect]
     Active Substance: CAPECITABINE
     Indication: GASTROOESOPHAGEAL CANCER
     Dosage: 6 TIMES UNTIL -MAY 2012
     Route: 065
  2. OXALIPLATIN. [Concomitant]
     Active Substance: OXALIPLATIN
     Indication: GASTROOESOPHAGEAL CANCER
     Dosage: 6 TIMES UNTIL -MAY 2012
     Route: 065
     Dates: end: 201205
  3. EPIRUBICINE [Concomitant]
     Active Substance: EPIRUBICIN
     Indication: GASTROOESOPHAGEAL CANCER
     Dosage: 6 TIMES UNTIL -MAY2012
     Route: 065
     Dates: end: 201205

REACTIONS (1)
  - Metastases to rectum [Unknown]

NARRATIVE: CASE EVENT DATE: 201510
